FAERS Safety Report 20390782 (Version 1)
Quarter: 2022Q1

REPORT INFORMATION
  Report Type: Spontaneous
  Country: US (occurrence: None)
  Receive Date: 20220127
  Receipt Date: 20220127
  Transmission Date: 20220423
  Serious: No
  Sender: FDA-Public Use
  Company Number: None

PATIENT
  Age: 29 Year
  Sex: Female

DRUGS (1)
  1. ERLOTINIB [Suspect]
     Active Substance: ERLOTINIB
     Indication: Large intestine benign neoplasm
     Dosage: ?25 DAILY ORAL?
     Route: 048

REACTIONS (1)
  - Emergency care [None]

NARRATIVE: CASE EVENT DATE: 20220127
